FAERS Safety Report 24919292 (Version 1)
Quarter: 2025Q1

REPORT INFORMATION
  Report Type: Spontaneous
  Country: GB (occurrence: GB)
  Receive Date: 20250204
  Receipt Date: 20250204
  Transmission Date: 20250409
  Serious: Yes (Other)
  Sender: TEVA
  Company Number: GB-MHRA-TPP21331443C13882177YC1737726171398

PATIENT
  Age: 38 Year
  Sex: Female
  Weight: 54 kg

DRUGS (8)
  1. DOXYCYCLINE [Suspect]
     Active Substance: DOXYCYCLINE
     Indication: Ill-defined disorder
     Dosage: TAKE 2 ONCE DAILY,100MG CAPSULES
     Route: 065
     Dates: start: 20250122
  2. BISOPROLOL [Concomitant]
     Active Substance: BISOPROLOL
     Indication: Ill-defined disorder
     Dosage: TAKE ONE DAILY, AS REQUIRED, MAX 2.5 MG/DAY
     Route: 065
     Dates: start: 20240315
  3. PREDNISOLONE [Concomitant]
     Active Substance: PREDNISOLONE
     Indication: Ill-defined disorder
     Dosage: TAKE EIGHT TABLETS AS A SINGLE DOSE ONCE DAILY ...
     Route: 065
     Dates: start: 20250111, end: 20250116
  4. BECLOMETHASONE\FORMOTEROL [Concomitant]
     Active Substance: BECLOMETHASONE\FORMOTEROL
     Indication: Ill-defined disorder
     Dosage: 2 PUFFS TO BE TAKEN TWICE DAILY
     Route: 065
     Dates: start: 20240315
  5. FERROUS FUMARATE [Concomitant]
     Active Substance: FERROUS FUMARATE
     Indication: Ill-defined disorder
     Dosage: TAKE ONE DAILY
     Route: 065
     Dates: start: 20241119
  6. RIVAROXABAN [Concomitant]
     Active Substance: RIVAROXABAN
     Indication: Ill-defined disorder
     Dosage: TAKE ONE DAILY AS PER CARDIOLOGY ADVICE WITH FOOD
     Route: 065
     Dates: start: 20240315
  7. HUXD3 [Concomitant]
     Indication: Ill-defined disorder
     Dosage: TAKE ONE TABLET TWICE A WEEK FOR 10 WEEKS
     Route: 065
     Dates: start: 20241119
  8. ALBUTEROL [Concomitant]
     Active Substance: ALBUTEROL
     Indication: Ill-defined disorder
     Route: 065
     Dates: start: 20250111

REACTIONS (3)
  - Tachycardia [Unknown]
  - Dizziness [Recovering/Resolving]
  - Palpitations [Unknown]
